FAERS Safety Report 7184865-9 (Version None)
Quarter: 2010Q4

REPORT INFORMATION
  Report Type: 
  Country: None (occurrence: None)
  Receive Date: 20101123
  Receipt Date: 20100831
  Transmission Date: 20110411
  Serious: No
  Sender: FDA-Public Use
  Company Number: 018074

PATIENT
  Sex: Female
  Weight: 54.4 kg

DRUGS (8)
  1. CIMZIA [Suspect]
     Indication: CROHN'S DISEASE
     Dosage: (400 MG 1X/MONTH SUBCUTANEOUS)
     Route: 058
     Dates: start: 20091101
  2. FLAGYL [Concomitant]
  3. CIPRO [Concomitant]
  4. ASACOL [Concomitant]
  5. PREDNISONE [Concomitant]
  6. VITAMIN B12 /00056201/ [Concomitant]
  7. PHENERGAN HCL [Concomitant]
  8. DEMEROL [Concomitant]

REACTIONS (3)
  - CERVICAL DYSPLASIA [None]
  - FISTULA DISCHARGE [None]
  - VOMITING [None]
